FAERS Safety Report 7211792-0 (Version None)
Quarter: 2011Q1

REPORT INFORMATION
  Report Type: 
  Country: None (occurrence: None)
  Receive Date: 20110105
  Receipt Date: 20101230
  Transmission Date: 20110831
  Serious: Yes (Hospitalization)
  Sender: FDA-Public Use
  Company Number: FR-MERCK-1012FRA00165

PATIENT
  Age: 77 Year
  Sex: Male

DRUGS (5)
  1. ATENOLOL [Concomitant]
     Route: 065
  2. HYZAAR [Concomitant]
     Route: 048
  3. ATORVASTATIN CALCIUM [Concomitant]
     Route: 048
  4. LERCANIDIPINE HYDROCHLORIDE [Concomitant]
     Route: 048
  5. JANUVIA [Suspect]
     Indication: TYPE 2 DIABETES MELLITUS
     Route: 048
     Dates: start: 20101101, end: 20101202

REACTIONS (1)
  - HEPATITIS [None]
